FAERS Safety Report 19024749 (Version 3)
Quarter: 2021Q2

REPORT INFORMATION
  Report Type: Spontaneous
  Country: US (occurrence: US)
  Receive Date: 20210318
  Receipt Date: 20210623
  Transmission Date: 20210717
  Serious: Yes (Hospitalization)
  Sender: FDA-Public Use
  Company Number: US-IPSEN BIOPHARMACEUTICALS, INC.-2021-05610

PATIENT
  Age: 69 Year
  Sex: Male
  Weight: 63.5 kg

DRUGS (5)
  1. VITAMIN D3 [Concomitant]
     Active Substance: CHOLECALCIFEROL
  2. MULTIVITAMIN [Concomitant]
     Active Substance: VITAMINS
     Dosage: DAILY
  3. B12 ACTIVE [Concomitant]
  4. SUTENT [Concomitant]
     Active Substance: SUNITINIB MALATE
  5. SOMATULINE DEPOT [Suspect]
     Active Substance: LANREOTIDE ACETATE
     Indication: NEUROENDOCRINE TUMOUR
     Dosage: 120 MG/ 0.5 ML
     Route: 058

REACTIONS (5)
  - Diarrhoea [Unknown]
  - Product distribution issue [Unknown]
  - Fatigue [Unknown]
  - Product dose omission issue [Unknown]
  - Hip fracture [Unknown]

NARRATIVE: CASE EVENT DATE: 20210404
